FAERS Safety Report 6695113-8 (Version None)
Quarter: 2010Q2

REPORT INFORMATION
  Report Type: 
  Country: None (occurrence: None)
  Receive Date: 20100423
  Receipt Date: 20100419
  Transmission Date: 20101027
  Serious: Yes (Death)
  Sender: FDA-Public Use
  Company Number: PHHY2010AU04991

PATIENT
  Sex: Male

DRUGS (3)
  1. AFINITOR [Suspect]
     Indication: METASTATIC RENAL CELL CARCINOMA
     Dosage: 10 MG
     Route: 048
     Dates: start: 20091016, end: 20091115
  2. HYDROMORPHONE HCL [Concomitant]
     Indication: ANALGESIC THERAPY
     Dosage: 1 MG, PRN
     Route: 058
  3. MIDAZOLAM HCL [Concomitant]
     Indication: ANALGESIC THERAPY
     Dosage: 2.5 - 5 MG
     Route: 042
     Dates: start: 20091211, end: 20091212

REACTIONS (1)
  - MALIGNANT NEOPLASM PROGRESSION [None]
